FAERS Safety Report 5864761-7 (Version None)
Quarter: 2008Q3

REPORT INFORMATION
  Report Type: 
  Country: None (occurrence: None)
  Receive Date: 20080829
  Receipt Date: 20080818
  Transmission Date: 20090109
  Serious: Yes (Other)
  Sender: FDA-Public Use
  Company Number: US-TYCO HEALTHCARE/MALLINCKRODT-T200801391

PATIENT

DRUGS (4)
  1. PHOSPHOCOL P32 [Suspect]
     Indication: ADENOCARCINOMA PANCREAS
  2. FLUOROURACIL [Suspect]
     Indication: ADENOCARCINOMA PANCREAS
     Dosage: 350 MG/M2, FIVE DAYS PER WK. FOR 6.5 WEEKS
     Route: 042
  3. GEMCITABINE [Suspect]
     Indication: ADENOCARCINOMA PANCREAS
     Dosage: ONCE PER WEEK FOR SEVEN WEEKS
     Route: 042
  4. OTHER CHEMOTHERAPEUTICS [Suspect]
     Indication: ADENOCARCINOMA PANCREAS
     Dosage: 1.8 GY FRACTIONS FIVE DAYS PER WEEK
     Route: 050

REACTIONS (1)
  - GASTROINTESTINAL HAEMORRHAGE [None]
